FAERS Safety Report 8680821 (Version 3)
Quarter: 2012Q4

REPORT INFORMATION
  Report Type: 
  Country: JP (occurrence: JP)
  Receive Date: 20120724
  Receipt Date: 20121024
  Transmission Date: 20130627
  Serious: Yes (Hospitalization, Disabling)
  Sender: FDA-Public Use
  Company Number: JP-JNJFOC-20120709455

PATIENT
  Age: 90 Year
  Sex: Female

DRUGS (5)
  1. XARELTO [Suspect]
     Indication: CEREBROVASCULAR ACCIDENT PROPHYLAXIS
     Route: 048
     Dates: start: 20120706, end: 20120715
  2. AMLODIPINE [Concomitant]
     Indication: HYPERTENSION
     Route: 048
     Dates: start: 20120704
  3. CINAL [Concomitant]
     Route: 048
     Dates: start: 20120704
  4. LYRICA [Concomitant]
     Indication: SPINAL PAIN
     Route: 048
     Dates: start: 20120711
  5. METHYCOBAL [Concomitant]
     Indication: SPINAL PAIN
     Dosage: daily dose: 1500??g
     Route: 048
     Dates: start: 20120704

REACTIONS (1)
  - Cerebral infarction [Not Recovered/Not Resolved]
